FAERS Safety Report 18935056 (Version 2)
Quarter: 2021Q1

REPORT INFORMATION
  Report Type: Report from Study
  Country: US (occurrence: US)
  Receive Date: 20210224
  Receipt Date: 20210302
  Transmission Date: 20210420
  Serious: Yes (Other)
  Sender: FDA-Public Use
  Company Number: US-BRISTOL-MYERS SQUIBB COMPANY-BMS-2021-018364

PATIENT
  Sex: Female

DRUGS (1)
  1. APIXABAN [Suspect]
     Active Substance: APIXABAN
     Indication: DEEP VEIN THROMBOSIS
     Dosage: 5 MILLIGRAM, BID
     Route: 065
     Dates: start: 201902

REACTIONS (10)
  - Prescribed underdose [Unknown]
  - Bleeding time prolonged [Unknown]
  - Limb injury [Unknown]
  - Wound haemorrhage [Unknown]
  - Thrombosis [Unknown]
  - Drug ineffective [Unknown]
  - Blister [Unknown]
  - Product dose omission in error [Unknown]
  - Dental caries [Unknown]
  - Intentional product use issue [Unknown]
